FAERS Safety Report 6181192-3 (Version None)
Quarter: 2009Q2

REPORT INFORMATION
  Report Type: 
  Country: None (occurrence: None)
  Receive Date: 20090504
  Receipt Date: 20090417
  Transmission Date: 20091009
  Serious: Yes (Other)
  Sender: FDA-Public Use
  Company Number: CIP09000991

PATIENT
  Age: 73 Year
  Sex: Female

DRUGS (3)
  1. RISEDRONATE SODIUM [Suspect]
     Indication: OSTEOPOROSIS
     Dosage: 17.5 MG, DAILY, ORAL
     Route: 048
     Dates: start: 20071130, end: 20090225
  2. LIVALO (ITAVASTATIN CALCIUM) [Concomitant]
  3. HALCION [Concomitant]

REACTIONS (1)
  - VISION BLURRED [None]
